FAERS Safety Report 8013368-4 (Version None)
Quarter: 2011Q4

REPORT INFORMATION
  Report Type: 
  Country: None (occurrence: None)
  Receive Date: 20111229
  Receipt Date: 20111227
  Transmission Date: 20120403
  Serious: Yes (Life-Threatening)
  Sender: FDA-Public Use
  Company Number: PHHY2011NI112940

PATIENT
  Age: 46 Year
  Sex: Female

DRUGS (1)
  1. LAMISIL [Suspect]

REACTIONS (2)
  - HYPERSENSITIVITY [None]
  - APPARENT DEATH [None]
